FAERS Safety Report 6936600-4 (Version None)
Quarter: 2010Q3

REPORT INFORMATION
  Report Type: 
  Country: None (occurrence: None)
  Receive Date: 20100823
  Receipt Date: 20100818
  Transmission Date: 20110219
  Serious: Yes (Death)
  Sender: FDA-Public Use
  Company Number: NL-ROCHE-721620

PATIENT

DRUGS (3)
  1. CAPECITABINE [Suspect]
     Indication: GASTRIC CANCER
     Dosage: LAST DOSE GIVEN PRIOR TODEATH: 21 JUN 2010. DAY 1-14 EVERY 3 WEEKS
     Route: 048
     Dates: start: 20100510, end: 20100621
  2. EPIRUBICIN [Suspect]
     Indication: GASTRIC CANCER
     Dosage: ON DAY 1 ONCE EVERY 3 WEEKS
     Route: 042
     Dates: start: 20100510, end: 20100621
  3. CISPLATIN [Suspect]
     Indication: GASTRIC CANCER
     Dosage: ON DAY 1 EVERY 3 WEEKS
     Route: 042
     Dates: start: 20100510, end: 20100621

REACTIONS (1)
  - PROCEDURAL COMPLICATION [None]
